FAERS Safety Report 5472541-X (Version None)
Quarter: 2007Q4

REPORT INFORMATION
  Report Type: 
  Country: None (occurrence: None)
  Receive Date: 20071001
  Receipt Date: 20070921
  Transmission Date: 20080405
  Serious: Yes (Hospitalization)
  Sender: FDA-Public Use
  Company Number: US-BAYER-200711739BCC

PATIENT
  Age: 75 Year
  Sex: Female
  Weight: 100 kg

DRUGS (4)
  1. ASPIRIN [Suspect]
     Indication: ISCHAEMIC HEART DISEASE PROPHYLAXIS
     Dosage: TOTAL DAILY DOSE: 81 MG  UNIT DOSE: 81 MG
     Route: 048
  2. ASPIRIN [Suspect]
     Indication: ISCHAEMIC HEART DISEASE PROPHYLAXIS
     Dosage: TOTAL DAILY DOSE: 325 MG  UNIT DOSE: 325 MG
     Route: 048
     Dates: start: 20070401, end: 20070530
  3. BETA BLOCKER [Concomitant]
  4. CARTIA XT [Concomitant]

REACTIONS (2)
  - COUGH [None]
  - PALPITATIONS [None]
